FAERS Safety Report 15457381 (Version 1)
Quarter: 2018Q4

REPORT INFORMATION
  Report Type: Spontaneous
  Country: US (occurrence: US)
  Receive Date: 20181002
  Receipt Date: 20181002
  Transmission Date: 20190204
  Serious: No
  Sender: FDA-Public Use
  Company Number: US-ASTRAZENECA-2018SF24898

PATIENT
  Age: 71 Year
  Sex: Female
  Weight: 76.2 kg

DRUGS (2)
  1. IBRANCE [Suspect]
     Active Substance: PALBOCICLIB
     Indication: BREAST CANCER RECURRENT
     Route: 048
     Dates: start: 201803
  2. FASLODEX [Suspect]
     Active Substance: FULVESTRANT
     Indication: BREAST CANCER RECURRENT
     Dosage: 2 SHOTS 1 IN EACH BUTTCK
     Route: 030

REACTIONS (9)
  - Disorientation [Unknown]
  - Sinusitis [Unknown]
  - Oral pain [Recovering/Resolving]
  - Nasopharyngitis [Unknown]
  - Oral pain [Recovered/Resolved]
  - Fatigue [Unknown]
  - Pain in jaw [Recovered/Resolved]
  - Sinus disorder [Unknown]
  - Blood count abnormal [Unknown]

NARRATIVE: CASE EVENT DATE: 201809
